FAERS Safety Report 4450304-1 (Version None)
Quarter: 2004Q3

REPORT INFORMATION
  Report Type: 
  Country: None (occurrence: None)
  Receive Date: 20040914
  Receipt Date: 20040831
  Transmission Date: 20050211
  Serious: Yes (Life-Threatening, Hospitalization)
  Sender: FDA-Public Use
  Company Number: 04P-087-0254089-00

PATIENT
  Age: 20 Year
  Sex: Male
  Weight: 50 kg

DRUGS (8)
  1. OMNICEF [Suspect]
     Indication: SYSTEMIC ANTIBACTERIAL THERAPY
     Dosage: 300 MG, 1 IN 1 D, PER ORAL
     Route: 048
     Dates: start: 20040310, end: 20040312
  2. AMOXICILLIN TRIHYDRATE [Suspect]
     Indication: SYSTEMIC ANTIBACTERIAL THERAPY
     Dosage: 750 MG, 1 IN 1 D, PER ORAL
     Route: 048
     Dates: start: 20040312, end: 20040312
  3. PL GRAN. [Suspect]
     Indication: NASOPHARYNGITIS
     Dosage: 3 GM, 1 IN 1 D, PER ORAL
     Route: 048
     Dates: start: 20040312, end: 20040312
  4. LOXOPROFEN SODIUM [Suspect]
     Indication: PYREXIA
     Dosage: 180 MG, 1 IN 1 D, PER ORAL
     Route: 048
     Dates: start: 20040310, end: 20040312
  5. VOLTAREN [Suspect]
     Indication: PYREXIA
     Dosage: 50 MG, 1 IN 1 D, RECTAL
     Route: 054
     Dates: start: 20040312, end: 20040312
  6. METILON (METAMIZOLE SODIUM) [Suspect]
     Dosage: 1 IN 1 D, INTRAMUSCULAR
     Route: 030
     Dates: start: 20040310, end: 20040310
  7. REBAMIPIDE [Concomitant]
  8. TEPRENONE [Concomitant]

REACTIONS (6)
  - ACUTE RESPIRATORY FAILURE [None]
  - BLOOD PRESSURE SYSTOLIC DECREASED [None]
  - CYANOSIS [None]
  - HYPOXIA [None]
  - LUNG INFILTRATION [None]
  - PYREXIA [None]
